FAERS Safety Report 8172987-5 (Version None)
Quarter: 2012Q1

REPORT INFORMATION
  Report Type: 
  Country: None (occurrence: None)
  Receive Date: 20120223
  Receipt Date: 20120217
  Transmission Date: 20120608
  Serious: Yes (Hospitalization)
  Sender: FDA-Public Use
  Company Number: IMP_05741_2012

PATIENT
  Age: 49 Year
  Sex: Male
  Weight: 74 kg

DRUGS (5)
  1. METFORMIN [Suspect]
     Indication: PRODUCT USED FOR UNKNOWN INDICATION
     Dosage: (DF ORAL)
     Route: 048
  2. VARDENAFIL HYDROCHLORIDE (LEVITRA) [Concomitant]
  3. GLYBURIDE [Suspect]
     Indication: PRODUCT USED FOR UNKNOWN INDICATION
     Dosage: (DF)
  4. LISINOPRIL [Concomitant]
  5. GEMFIBROZIL [Concomitant]

REACTIONS (30)
  - TYMPANIC MEMBRANE DISORDER [None]
  - RENAL FAILURE ACUTE [None]
  - LEUKOCYTOSIS [None]
  - STAPHYLOCOCCUS TEST POSITIVE [None]
  - THROMBOCYTOPENIA [None]
  - DEAFNESS NEUROSENSORY [None]
  - ANION GAP INCREASED [None]
  - BLOOD CULTURE POSITIVE [None]
  - VERTIGO [None]
  - NECROSIS [None]
  - ADRENAL DISORDER [None]
  - RESPIRATORY DISTRESS [None]
  - MIDDLE EAR DISORDER [None]
  - CEREBRAL ISCHAEMIA [None]
  - LACTIC ACIDOSIS [None]
  - RESPIRATORY FAILURE [None]
  - SUICIDE ATTEMPT [None]
  - OTITIS EXTERNA [None]
  - HYPERGLYCAEMIA [None]
  - HYPERNATRAEMIA [None]
  - UNRESPONSIVE TO STIMULI [None]
  - TINNITUS [None]
  - HYPOTENSION [None]
  - OVERDOSE [None]
  - EAR PAIN [None]
  - HYPOGLYCAEMIA [None]
  - CONTINUOUS HAEMODIAFILTRATION [None]
  - CULTURE URINE POSITIVE [None]
  - STREPTOCOCCUS TEST POSITIVE [None]
  - DIARRHOEA [None]
